FAERS Safety Report 22399242 (Version 4)
Quarter: 2023Q2

REPORT INFORMATION
  Report Type: Spontaneous
  Country: AR (occurrence: AR)
  Receive Date: 20230602
  Receipt Date: 20230629
  Transmission Date: 20230722
  Serious: No
  Sender: FDA-Public Use
  Company Number: AR-PFIZER INC-PV202300088378

PATIENT
  Age: 35 Year
  Sex: Female

DRUGS (1)
  1. ENBREL [Suspect]
     Active Substance: ETANERCEPT
     Dosage: 50 MG, WEEKLY

REACTIONS (6)
  - Headache [Unknown]
  - Arthralgia [Unknown]
  - Device delivery system issue [Unknown]
  - Needle issue [Unknown]
  - Device failure [Unknown]
  - Drug dose omission by device [Unknown]
